FAERS Safety Report 18146932 (Version 1)
Quarter: 2020Q3

REPORT INFORMATION
  Report Type: Spontaneous
  Country: ES (occurrence: ES)
  Receive Date: 20200814
  Receipt Date: 20200814
  Transmission Date: 20201103
  Serious: Yes (Other)
  Sender: FDA-Public Use
  Company Number: ES-SUN PHARMACEUTICAL INDUSTRIES LTD-2020RR-257433

PATIENT
  Age: 34 Year
  Sex: Female

DRUGS (7)
  1. ENANTYUM 25 MG COMPRIMIDOS, 20 COMPRIMIDOS [Suspect]
     Active Substance: DEXKETOPROFEN TROMETAMOL
     Indication: BACK PAIN
     Dosage: 25 MILLIGRAM, BID
     Route: 048
     Dates: start: 20200410, end: 20200502
  2. DIAZEPAM (730A) [Concomitant]
     Active Substance: DIAZEPAM
     Indication: PRODUCT USED FOR UNKNOWN INDICATION
     Dosage: 10 MILLIGRAM, DAILY
     Route: 048
     Dates: start: 20200410, end: 20200430
  3. METAMIZOL (111A) [Suspect]
     Active Substance: METAMIZOL SODIUM
     Indication: BACK PAIN
     Dosage: 575 MILLIGRAM, TID
     Route: 048
     Dates: start: 20200410, end: 20200502
  4. DICLOFENACO (745A) [Suspect]
     Active Substance: DICLOFENAC
     Indication: BACK PAIN
     Dosage: 50 MILLIGRAM, TID
     Route: 048
     Dates: start: 20200410, end: 20200502
  5. PARACETAMOL [Suspect]
     Active Substance: ACETAMINOPHEN
     Indication: TOOTHACHE
     Dosage: 1 GRAM, TID
     Route: 048
     Dates: start: 20200313, end: 20200326
  6. AMOXICILLIN. [Suspect]
     Active Substance: AMOXICILLIN
     Indication: TOOTHACHE
     Dosage: 750 MILLIGRAM, TID
     Route: 048
     Dates: start: 20200313, end: 20200323
  7. OMEPRAZOLE. [Suspect]
     Active Substance: OMEPRAZOLE
     Indication: PRODUCT USED FOR UNKNOWN INDICATION
     Dosage: 20 MILLIGRAM, DAILY
     Route: 048
     Dates: start: 20200410, end: 20200510

REACTIONS (2)
  - Hyperbilirubinaemia [Recovered/Resolved]
  - Hepatocellular injury [Recovered/Resolved]

NARRATIVE: CASE EVENT DATE: 20200502
